FAERS Safety Report 10940407 (Version 2)
Quarter: 2015Q2

REPORT INFORMATION
  Report Type: Spontaneous
  Country: US (occurrence: US)
  Receive Date: 20150322
  Receipt Date: 20150524
  Transmission Date: 20150821
  Serious: No
  Sender: FDA-Public Use
  Company Number: US-JNJFOC-20120211273

PATIENT
  Age: 47 Year
  Sex: Male

DRUGS (2)
  1. REOPRO [Suspect]
     Active Substance: ABCIXIMAB
     Indication: ACUTE MYOCARDIAL INFARCTION
     Dosage: 1 VIAL AM, LAST WEEK
     Route: 042
  2. REOPRO [Suspect]
     Active Substance: ABCIXIMAB
     Indication: PERCUTANEOUS CORONARY INTERVENTION
     Dosage: 1 VIAL AM, LAST WEEK
     Route: 042

REACTIONS (2)
  - Product label confusion [Unknown]
  - Prescribed overdose [Unknown]
